FAERS Safety Report 5646123-0 (Version None)
Quarter: 2008Q1

REPORT INFORMATION
  Report Type: 
  Country: None (occurrence: None)
  Receive Date: 20080227
  Receipt Date: 20080218
  Transmission Date: 20080703
  Serious: Yes (Life-Threatening, Hospitalization)
  Sender: FDA-Public Use
  Company Number: B0509570A

PATIENT
  Age: 62 Year
  Sex: Male

DRUGS (1)
  1. AVANDARYL TABLET (GLIMEPIRIDE + ROSIGLITAZO) [Suspect]
     Indication: DIABETES MELLITUS
     Dosage: 4 MG / PER DAY / ORAL
     Route: 048
     Dates: start: 20070703, end: 20071115

REACTIONS (4)
  - ACUTE PULMONARY OEDEMA [None]
  - CARDIAC FAILURE [None]
  - PAIN IN EXTREMITY [None]
  - PULMONARY EMBOLISM [None]
